FAERS Safety Report 9998338 (Version 1)
Quarter: 2014Q1

REPORT INFORMATION
  Report Type: Spontaneous
  Country: US (occurrence: US)
  Receive Date: 20140312
  Receipt Date: 20140312
  Transmission Date: 20141002
  Serious: Yes (Hospitalization)
  Sender: FDA-Public Use
  Company Number: US-ROCHE-1363804

PATIENT
  Age: 2 Year
  Sex: Female

DRUGS (1)
  1. TAMIFLU [Suspect]
     Indication: INFLUENZA
     Dosage: 6 MG/ML, 5 ML
     Route: 065
     Dates: start: 20140121

REACTIONS (2)
  - Acute disseminated encephalomyelitis [Not Recovered/Not Resolved]
  - Gait disturbance [Unknown]
